FAERS Safety Report 8374047-7 (Version None)
Quarter: 2012Q2

REPORT INFORMATION
  Report Type: 
  Country: None (occurrence: None)
  Receive Date: 20120517
  Receipt Date: 20120517
  Transmission Date: 20120825
  Serious: Yes (Other)
  Sender: FDA-Public Use
  Company Number: None

PATIENT
  Sex: Male
  Weight: 27.2158 kg

DRUGS (1)
  1. SINGULAIR [Suspect]
     Indication: ASTHMA
     Dosage: 5MG ONCE DAILY PO
     Route: 048
     Dates: start: 20120405, end: 20120501

REACTIONS (7)
  - MOOD SWINGS [None]
  - ANGER [None]
  - ABNORMAL BEHAVIOUR [None]
  - PERSONALITY DISORDER [None]
  - AGGRESSION [None]
  - ANXIETY [None]
  - OBSESSIVE-COMPULSIVE DISORDER [None]
